FAERS Safety Report 23920994 (Version 2)
Quarter: 2024Q3

REPORT INFORMATION
  Report Type: Report from Study
  Country: US (occurrence: US)
  Receive Date: 20240530
  Receipt Date: 20240828
  Transmission Date: 20241017
  Serious: Yes (Other)
  Sender: ABBVIE
  Company Number: US-ABBVIE-5713102

PATIENT
  Sex: Female

DRUGS (2)
  1. HUMIRA [Suspect]
     Active Substance: ADALIMUMAB
     Indication: Uveitis
     Dosage: FORM STRENGTH WAS 40 MILLIGRAMS
     Route: 058
     Dates: start: 20231026
  2. HUMIRA [Suspect]
     Active Substance: ADALIMUMAB
     Dosage: FORM STRENGTH WAS 40 MILLIGRAMS
     Route: 058

REACTIONS (6)
  - Cataract [Recovering/Resolving]
  - Glaucoma drainage device placement [Unknown]
  - Visual impairment [Unknown]
  - Photophobia [Unknown]
  - Post procedural complication [Unknown]
  - Intraocular pressure test abnormal [Not Recovered/Not Resolved]

NARRATIVE: CASE EVENT DATE: 20240101
